FAERS Safety Report 5043687-5 (Version None)
Quarter: 2006Q3

REPORT INFORMATION
  Report Type: 
  Country: None (occurrence: None)
  Receive Date: 20060706
  Receipt Date: 20060628
  Transmission Date: 20061208
  Serious: Yes (Hospitalization, Other)
  Sender: FDA-Public Use
  Company Number: ES-JNJFOC-20060602226

PATIENT
  Age: 19 Year
  Sex: Female

DRUGS (3)
  1. REMICADE [Suspect]
     Indication: CROHN'S DISEASE
     Dosage: 5 INFUSIONS OF 400MG
     Route: 042
  2. REMICADE [Suspect]
     Indication: COLITIS
     Dosage: 200MG
     Route: 042
  3. AZATHIOPRINE [Concomitant]

REACTIONS (3)
  - DISORIENTATION [None]
  - MENINGITIS LISTERIA [None]
  - THERAPY NON-RESPONDER [None]
